FAERS Safety Report 16374584 (Version 1)
Quarter: 2019Q2

REPORT INFORMATION
  Report Type: Spontaneous
  Country: NP (occurrence: NP)
  Receive Date: 20190530
  Receipt Date: 20190530
  Transmission Date: 20190711
  Serious: Yes (Death, Hospitalization, Other)
  Sender: FDA-Public Use
  Company Number: NP-ACELLA PHARMACEUTICALS, LLC-2067617

PATIENT
  Age: 17 Year
  Sex: Female

DRUGS (2)
  1. PHENYTOIN SODIUM. [Suspect]
     Active Substance: PHENYTOIN SODIUM
     Indication: GENERALISED TONIC-CLONIC SEIZURE
  2. HYOSCINE [Suspect]
     Active Substance: SCOPOLAMINE

REACTIONS (18)
  - Pyrexia [Unknown]
  - Coma [Unknown]
  - Pneumonia [Unknown]
  - Quadriplegia [Unknown]
  - Vomiting [Unknown]
  - Neuropathy peripheral [Unknown]
  - Abdominal pain [Unknown]
  - Productive cough [Unknown]
  - Blood pressure increased [Unknown]
  - Respiratory failure [Fatal]
  - Cardiomegaly [Unknown]
  - Generalised tonic-clonic seizure [Unknown]
  - Porphyria acute [Fatal]
  - Seizure [Fatal]
  - Muscular weakness [Unknown]
  - Cough [Unknown]
  - Urinary incontinence [Unknown]
  - Death [Fatal]
